FAERS Safety Report 4594020-4 (Version None)
Quarter: 2005Q1

REPORT INFORMATION
  Report Type: 
  Country: None (occurrence: None)
  Receive Date: 20050218
  Receipt Date: 20050208
  Transmission Date: 20050727
  Serious: Yes (Other)
  Sender: FDA-Public Use
  Company Number: 2005019540

PATIENT
  Age: 67 Year
  Sex: Male

DRUGS (2)
  1. XALATAN [Suspect]
     Indication: ILL-DEFINED DISORDER
     Dosage: 1 DROP (DAILY), OPHTHALMIC
     Route: 047
     Dates: start: 20050103
  2. TOBRADEX [Concomitant]

REACTIONS (1)
  - NO ADVERSE DRUG EFFECT [None]
